FAERS Safety Report 12082630 (Version 3)
Quarter: 2019Q4

REPORT INFORMATION
  Report Type: Report from Study
  Country: US (occurrence: US)
  Receive Date: 20160217
  Receipt Date: 20191031
  Transmission Date: 20200122
  Serious: Yes (Other)
  Sender: FDA-Public Use
  Company Number: PHHY2015US120500

PATIENT
  Age: 18 Year
  Sex: Male

DRUGS (1)
  1. GILENYA [Suspect]
     Active Substance: FINGOLIMOD HYDROCHLORIDE
     Indication: MULTIPLE SCLEROSIS
     Dosage: QD
     Route: 048

REACTIONS (5)
  - Diplopia [Not Recovered/Not Resolved]
  - Oropharyngeal pain [Unknown]
  - Low density lipoprotein decreased [Unknown]
  - Sinusitis [Recovered/Resolved]
  - Chest wall abscess [Recovered/Resolved]

NARRATIVE: CASE EVENT DATE: 20150710
